FAERS Safety Report 15959667 (Version 1)
Quarter: 2019Q1

REPORT INFORMATION
  Report Type: Spontaneous
  Country: US (occurrence: US)
  Receive Date: 20190214
  Receipt Date: 20190214
  Transmission Date: 20190417
  Serious: No
  Sender: FDA-Public Use
  Company Number: US-AUROBINDO-AUR-APL-2018-062995

PATIENT
  Sex: Female
  Weight: 72.56 kg

DRUGS (1)
  1. ESOMEPRAZOLE MAGNESIUM DELAYED-RELEASE CAPSULES 40 MG [Suspect]
     Active Substance: ESOMEPRAZOLE MAGNESIUM
     Indication: ACIDOSIS
     Dosage: 40 MILLIGRAM, DAILY
     Route: 048

REACTIONS (8)
  - Constipation [Recovered/Resolved]
  - Paraesthesia [Recovered/Resolved]
  - Product substitution issue [Recovered/Resolved]
  - Abdominal distension [Recovering/Resolving]
  - Gastritis [Recovered/Resolved]
  - Panic attack [Recovered/Resolved]
  - Chest discomfort [Recovered/Resolved]
  - Cough [Recovered/Resolved]
